FAERS Safety Report 23604629 (Version 3)
Quarter: 2024Q2

REPORT INFORMATION
  Report Type: Report from Study
  Country: IE (occurrence: IE)
  Receive Date: 20240307
  Receipt Date: 20240402
  Transmission Date: 20240716
  Serious: Yes (Disabling)
  Sender: FDA-Public Use
  Company Number: IE-002147023-NVSC2024IE048726

PATIENT
  Sex: Female

DRUGS (3)
  1. KESIMPTA [Suspect]
     Active Substance: OFATUMUMAB
     Indication: Relapsing-remitting multiple sclerosis
     Dosage: UNK, QMO
     Route: 065
     Dates: start: 20221110
  2. KESIMPTA [Suspect]
     Active Substance: OFATUMUMAB
     Indication: Multiple sclerosis
     Dosage: 20 MG, QW (FOR WEEKS 0,1, 2 AND 4) THEN ONCE MONTHLY
     Route: 058
     Dates: start: 20221115
  3. KESIMPTA [Suspect]
     Active Substance: OFATUMUMAB
     Dosage: 20 MG, QMO
     Route: 058

REACTIONS (1)
  - Gastrointestinal carcinoma [Unknown]
